FAERS Safety Report 18683244 (Version 3)
Quarter: 2021Q2

REPORT INFORMATION
  Report Type: Spontaneous
  Country: US (occurrence: US)
  Receive Date: 20201230
  Receipt Date: 20210413
  Transmission Date: 20210717
  Serious: Yes (Hospitalization)
  Sender: FDA-Public Use
  Company Number: US-IPSEN BIOPHARMACEUTICALS, INC.-2020-26104

PATIENT
  Sex: Female
  Weight: 83.46 kg

DRUGS (1)
  1. SOMATULINE DEPOT [Suspect]
     Active Substance: LANREOTIDE ACETATE
     Indication: NEUROENDOCRINE CARCINOMA METASTATIC
     Dosage: STRENGTH: 120 MG/0.5 ML
     Route: 058
     Dates: start: 20200923

REACTIONS (11)
  - Nausea [Unknown]
  - Urticaria [Unknown]
  - Feeling cold [Unknown]
  - Dyspepsia [Unknown]
  - Asthenia [Unknown]
  - Neoplasm progression [Recovering/Resolving]
  - Flushing [Unknown]
  - Vomiting [Unknown]
  - Fatigue [Not Recovered/Not Resolved]
  - Decreased appetite [Unknown]
  - Abdominal distension [Unknown]
